FAERS Safety Report 23287973 (Version 2)
Quarter: 2024Q1

REPORT INFORMATION
  Report Type: Spontaneous
  Country: US (occurrence: US)
  Receive Date: 20231212
  Receipt Date: 20240117
  Transmission Date: 20240409
  Serious: No
  Sender: FDA-Public Use
  Company Number: US-BRISTOL-MYERS SQUIBB COMPANY-2023-179401

PATIENT
  Age: 71 Year
  Sex: Male
  Weight: 66.22 kg

DRUGS (1)
  1. REVLIMID [Suspect]
     Active Substance: LENALIDOMIDE
     Indication: Lymphoedema
     Route: 048
     Dates: start: 20231001

REACTIONS (4)
  - Full blood count decreased [Unknown]
  - Off label use [Unknown]
  - Pruritus [Recovering/Resolving]
  - Cough [Recovering/Resolving]
